FAERS Safety Report 5839965-X (Version None)
Quarter: 2008Q3

REPORT INFORMATION
  Report Type: 
  Country: None (occurrence: None)
  Receive Date: 20080807
  Receipt Date: 20080807
  Transmission Date: 20090109
  Serious: Yes (Other)
  Sender: FDA-Public Use
  Company Number: None

PATIENT
  Sex: Male
  Weight: 68.0396 kg

DRUGS (2)
  1. LISINOPRIL [Suspect]
     Indication: HYPERTENSION
     Dosage: ONE TAB QDAY PO
     Route: 048
     Dates: start: 20080805, end: 20080807
  2. IBUPROFEN [Suspect]
     Indication: ARTHRITIS
     Dosage: 1-2 TAB QDAY PO
     Route: 048
     Dates: start: 20080805, end: 20080807

REACTIONS (1)
  - FACIAL PALSY [None]
